FAERS Safety Report 8102884-2 (Version None)
Quarter: 2012Q1

REPORT INFORMATION
  Report Type: 
  Country: None (occurrence: None)
  Receive Date: 20120201
  Receipt Date: 20120118
  Transmission Date: 20120608
  Serious: Yes (Other)
  Sender: FDA-Public Use
  Company Number: IE-ELI_LILLY_AND_COMPANY-IE201112006434

PATIENT
  Sex: Female
  Weight: 84 kg

DRUGS (5)
  1. VARENICLINE TARTRATE [Concomitant]
     Indication: SMOKING CESSATION THERAPY
     Dosage: UNK
     Route: 058
     Dates: start: 20100825
  2. PROZAC [Suspect]
     Indication: DEPRESSION
     Dosage: 20 MG, QD
  3. PROZAC [Suspect]
     Dosage: 80 MG, QD
     Dates: start: 20101001
  4. PROZAC [Suspect]
     Dosage: UNK UNK, QD
  5. VARENICLINE TARTRATE [Concomitant]
     Dosage: UNK
     Route: 058
     Dates: start: 20101026, end: 20101101

REACTIONS (11)
  - COGNITIVE DISORDER [None]
  - AGGRESSION [None]
  - DYSARTHRIA [None]
  - EMOTIONAL DISORDER [None]
  - AMNESIA [None]
  - DRUG INTERACTION [None]
  - HOSTILITY [None]
  - DISORIENTATION [None]
  - OVERDOSE [None]
  - INTENTIONAL DRUG MISUSE [None]
  - SCREAMING [None]
